FAERS Safety Report 6944660-X (Version None)
Quarter: 2010Q3

REPORT INFORMATION
  Report Type: 
  Country: None (occurrence: None)
  Receive Date: 20100827
  Receipt Date: 20100823
  Transmission Date: 20110219
  Serious: Yes (Life-Threatening, Hospitalization, Other)
  Sender: FDA-Public Use
  Company Number: PHHY2010DE28112

PATIENT
  Sex: Male
  Weight: 98 kg

DRUGS (10)
  1. ALISKIREN ALI+ [Suspect]
     Indication: HYPERTENSION
     Dosage: 150 MG, 1DF PER DAY
     Route: 048
     Dates: start: 20090312
  2. APROVEL [Concomitant]
     Indication: CORONARY ARTERY DISEASE
     Dosage: 300 MG PER DAY
     Route: 048
     Dates: start: 20040715
  3. METOHEXAL [Concomitant]
     Indication: CORONARY ARTERY DISEASE
     Dosage: 95 MG PER DAY
     Route: 048
     Dates: start: 20021001
  4. CARMEN [Concomitant]
     Indication: HYPERTENSION
     Dosage: 20 MG PER DAY
     Route: 048
     Dates: start: 20061110
  5. TORSEMIDE [Concomitant]
     Indication: RENAL FAILURE
     Dosage: 50 MG PER DAY
     Route: 048
     Dates: start: 20080617
  6. IS 5 MONO ^RATIOPHARM^ [Concomitant]
     Indication: CORONARY ARTERY DISEASE
     Dosage: 20 MG PER DAY
     Route: 048
     Dates: start: 20021001
  7. NITROLINGUAL [Concomitant]
     Indication: ANGINA PECTORIS
     Dosage: 0.4 MG PER DAY
     Route: 060
     Dates: start: 20021001
  8. ASPIRIN [Concomitant]
     Indication: CORONARY ARTERY DISEASE
     Dosage: 100MG PER DAY
     Route: 048
     Dates: start: 20021001
  9. LEVOTHYROXINE SODIUM [Concomitant]
     Indication: HYPOTHYROIDISM
     Dosage: 75 MCG PER DAY
     Route: 048
     Dates: start: 20021001
  10. ALLOPURINOL ^HEUMANN^ [Concomitant]
     Indication: HYPERURICAEMIA
     Dosage: 300 MG PER DAY
     Route: 048
     Dates: start: 20040211

REACTIONS (4)
  - ANGINA PECTORIS [None]
  - CARDIAC OPERATION [None]
  - HYPERTENSION [None]
  - HYPERTENSIVE NEPHROPATHY [None]
